FAERS Safety Report 5984730-6 (Version None)
Quarter: 2008Q4

REPORT INFORMATION
  Report Type: 
  Country: None (occurrence: None)
  Receive Date: 20081208
  Receipt Date: 20080728
  Transmission Date: 20090506
  Serious: Yes (Hospitalization)
  Sender: FDA-Public Use
  Company Number: US-AMGEN-QUU297637

PATIENT
  Age: 17 Year
  Sex: Male
  Weight: 67 kg

DRUGS (3)
  1. ENBREL [Suspect]
     Indication: ANKYLOSING SPONDYLITIS
     Route: 058
     Dates: start: 20040930, end: 20080501
  2. ENBREL [Suspect]
  3. ACCUTANE [Suspect]
     Route: 048
     Dates: start: 20071101, end: 20080501

REACTIONS (4)
  - APPENDICITIS [None]
  - LIVER ABSCESS [None]
  - MUSCULOSKELETAL PAIN [None]
  - STREPTOCOCCAL INFECTION [None]
